FAERS Safety Report 7281946-6 (Version None)
Quarter: 2011Q1

REPORT INFORMATION
  Report Type: 
  Country: None (occurrence: None)
  Receive Date: 20110208
  Receipt Date: 20110204
  Transmission Date: 20110831
  Serious: Yes (Other)
  Sender: FDA-Public Use
  Company Number: US-AMGEN-USASP2011007063

PATIENT
  Age: 65 Year
  Sex: Female

DRUGS (1)
  1. ENBREL [Suspect]
     Indication: RHEUMATOID ARTHRITIS
     Dosage: 50 MG, QWK
     Dates: start: 20101120

REACTIONS (6)
  - BLOOD POTASSIUM DECREASED [None]
  - INFLUENZA [None]
  - THERAPEUTIC RESPONSE DECREASED [None]
  - SINUSITIS [None]
  - DEHYDRATION [None]
  - DIZZINESS [None]
